FAERS Safety Report 9783755 (Version 5)
Quarter: 2014Q1

REPORT INFORMATION
  Report Type: Report from Study
  Country: MX (occurrence: MX)
  Receive Date: 20131226
  Receipt Date: 20140116
  Transmission Date: 20141002
  Serious: Yes (Hospitalization)
  Sender: FDA-Public Use
  Company Number: MX-JNJFOC-20131211577

PATIENT
  Age: 8 Year
  Sex: Female
  Weight: 27 kg

DRUGS (6)
  1. GOLIMUMAB [Suspect]
     Indication: JUVENILE IDIOPATHIC ARTHRITIS
     Dosage: WEEK 0
     Route: 058
     Dates: start: 20120530
  2. GOLIMUMAB [Suspect]
     Indication: JUVENILE IDIOPATHIC ARTHRITIS
     Dosage: WEEK 76
     Route: 058
     Dates: start: 20131113, end: 20131211
  3. GOLIMUMAB [Suspect]
     Indication: JUVENILE IDIOPATHIC ARTHRITIS
     Route: 058
     Dates: start: 20140102
  4. FOLIC ACID [Concomitant]
     Route: 048
     Dates: start: 20130305
  5. FOLIC ACID [Concomitant]
     Route: 048
     Dates: start: 20111102, end: 20120627
  6. DICLOFENAC [Concomitant]
     Route: 048
     Dates: start: 20111102

REACTIONS (1)
  - Lymphoid tissue hyperplasia [Recovered/Resolved]
